FAERS Safety Report 8005455-1 (Version None)
Quarter: 2011Q4

REPORT INFORMATION
  Report Type: 
  Country: None (occurrence: None)
  Receive Date: 20111223
  Receipt Date: 20111213
  Transmission Date: 20120403
  Serious: Yes (Other)
  Sender: FDA-Public Use
  Company Number: ES-JNJFOC-20111206182

PATIENT
  Age: 50 Year
  Sex: Male
  Weight: 110 kg

DRUGS (6)
  1. ACETAMINOPHEN [Concomitant]
     Indication: PREMEDICATION
  2. HYDROXYZINE [Concomitant]
     Indication: PREMEDICATION
  3. REMICADE [Suspect]
     Route: 042
  4. REMICADE [Suspect]
     Indication: PSORIASIS
     Dosage: WEEK 2
     Route: 042
  5. REMICADE [Suspect]
     Dosage: WEEK 6
     Route: 042
  6. REMICADE [Suspect]
     Dosage: HAD 1 YEAR OF TREATMENT WITH TEMPORAL TREATMENT INTERRUPTIONS
     Route: 042

REACTIONS (1)
  - CATARACT [None]
